FAERS Safety Report 16705403 (Version 1)
Quarter: 2019Q3

REPORT INFORMATION
  Report Type: Report from Study
  Country: US (occurrence: US)
  Receive Date: 20190815
  Receipt Date: 20190815
  Transmission Date: 20191004
  Serious: No
  Sender: FDA-Public Use
  Company Number: PHEH2019US033361

PATIENT
  Sex: Female

DRUGS (1)
  1. ILARIS [Suspect]
     Active Substance: CANAKINUMAB
     Indication: STILL^S DISEASE
     Dosage: 172 MG, Q 7 WEEKS
     Route: 058

REACTIONS (4)
  - Lymphadenopathy [Recovered/Resolved]
  - Inappropriate schedule of product administration [Unknown]
  - Urticaria [Unknown]
  - Pruritus [Unknown]
